FAERS Safety Report 11553222 (Version 1)
Quarter: 2015Q3

REPORT INFORMATION
  Report Type: Not Available
  Country: US (occurrence: US)
  Receive Date: 20150925
  Receipt Date: 20150925
  Transmission Date: 20151125
  Serious: No
  Sender: FDA-Public Use
  Company Number: US-MERZ NORTH AMERICA, INC.-15MRZ-00521

PATIENT
  Age: 53 Year
  Sex: Female
  Weight: 59.02 kg

DRUGS (2)
  1. PROZAC [Concomitant]
     Active Substance: FLUOXETINE HYDROCHLORIDE
  2. XEOMIN [Suspect]
     Active Substance: INCOBOTULINUMTOXINA
     Indication: SKIN COSMETIC PROCEDURE
     Dosage: 2 UNITS AROUND MOUTH
     Dates: start: 20150914, end: 20150914

REACTIONS (3)
  - Dysphagia [None]
  - Muscle spasms [None]
  - Dyskinesia [None]
